FAERS Safety Report 5992019-4 (Version None)
Quarter: 2008Q4

REPORT INFORMATION
  Report Type: 
  Country: None (occurrence: None)
  Receive Date: 20081211
  Receipt Date: 20081204
  Transmission Date: 20090506
  Serious: Yes (Hospitalization)
  Sender: FDA-Public Use
  Company Number: FR-ROXANE LABORATORIES, INC.-2008-RO-00343RO

PATIENT
  Age: 63 Year
  Sex: Female

DRUGS (12)
  1. PREDNISONE TAB [Suspect]
     Indication: SINUSITIS
  2. CORTICOSTEROIDS [Suspect]
     Indication: ASTHMA
     Route: 055
  3. CORTICOSTEROIDS [Suspect]
     Indication: IMMUNOSUPPRESSION
  4. BRONCHODILATORS [Suspect]
     Indication: ASTHMA
     Route: 055
  5. PRISTINAMYCIN [Suspect]
     Indication: SINUSITIS
  6. PIPERACILLIN SODIUM AND TAZOBACTAM SODIUM [Suspect]
     Indication: EVIDENCE BASED TREATMENT
  7. TEICOPLANIN [Suspect]
     Indication: EVIDENCE BASED TREATMENT
  8. ACYCLOVIR [Suspect]
     Indication: HERPES SIMPLEX HEPATITIS
  9. ACYCLOVIR [Suspect]
     Indication: IMMUNOSUPPRESSION
     Route: 042
  10. ANTI-THYMOCYTE GLOBULIN NOS [Suspect]
     Indication: IMMUNOSUPPRESSION
  11. TACROLIMUS [Suspect]
     Indication: IMMUNOSUPPRESSION
  12. GANCICLOVIR [Suspect]
     Indication: ANTIVIRAL PROPHYLAXIS

REACTIONS (6)
  - ACUTE RESPIRATORY DISTRESS SYNDROME [None]
  - ASPERGILLOSIS [None]
  - HEPATITIS FULMINANT [None]
  - HERPES ZOSTER [None]
  - LIVER TRANSPLANT [None]
  - RENAL FAILURE [None]
